FAERS Safety Report 6915180-3 (Version None)
Quarter: 2010Q3

REPORT INFORMATION
  Report Type: 
  Country: None (occurrence: None)
  Receive Date: 20100804
  Receipt Date: 20100804
  Transmission Date: 20110219
  Serious: Yes (Life-Threatening)
  Sender: FDA-Public Use
  Company Number: None

PATIENT
  Age: 85 Year
  Sex: Male

DRUGS (1)
  1. ADENOSINE [Suspect]
     Dates: start: 20100401, end: 20100421

REACTIONS (6)
  - BRONCHOSPASM [None]
  - HYPERTENSION [None]
  - HYPOTENSION [None]
  - PROCEDURAL COMPLICATION [None]
  - PULSE ABSENT [None]
  - RESPIRATORY DISTRESS [None]
